FAERS Safety Report 4337218-2 (Version None)
Quarter: 2004Q2

REPORT INFORMATION
  Report Type: 
  Country: None (occurrence: None)
  Receive Date: 20040412
  Receipt Date: 20040412
  Transmission Date: 20050107
  Serious: Yes (Death)
  Sender: FDA-Public Use
  Company Number: None

PATIENT
  Age: 37 Year
  Sex: Female
  Weight: 49.8957 kg

DRUGS (2)
  1. OXYCONTIN [Suspect]
     Dosage: 40 MG 3 TIMES
  2. OXYCONTIN [Suspect]
     Dosage: 80 MG 3 TIMES

REACTIONS (1)
  - PHARMACEUTICAL PRODUCT COMPLAINT [None]
